FAERS Safety Report 23634730 (Version 1)
Quarter: 2024Q1

REPORT INFORMATION
  Report Type: Spontaneous
  Country: US (occurrence: US)
  Receive Date: 20240315
  Receipt Date: 20240315
  Transmission Date: 20240410
  Serious: Yes (Other)
  Sender: FDA-Public Use
  Company Number: US-NOVOPROD-1188697

PATIENT
  Age: 60 Year
  Sex: Female

DRUGS (1)
  1. RYBELSUS [Suspect]
     Active Substance: SEMAGLUTIDE
     Indication: Product used for unknown indication
     Dosage: 14 MG, QD
     Route: 048
     Dates: start: 20190601, end: 20230801

REACTIONS (3)
  - Intraductal papillary mucinous neoplasm [Recovered/Resolved]
  - Type 1 diabetes mellitus [Not Recovered/Not Resolved]
  - Pancreatitis acute [Unknown]

NARRATIVE: CASE EVENT DATE: 20230801
